FAERS Safety Report 4678302-3 (Version None)
Quarter: 2005Q2

REPORT INFORMATION
  Report Type: 
  Country: None (occurrence: None)
  Receive Date: 20050527
  Receipt Date: 20050516
  Transmission Date: 20051028
  Serious: Yes (Hospitalization)
  Sender: FDA-Public Use
  Company Number: PL-2005-005527

PATIENT
  Sex: Female

DRUGS (1)
  1. BETAFERON 250 ?G, 500 ?G AND COPAXONE (BETAFERON (SH Y03967A))INJECTIO [Suspect]
     Indication: MULTIPLE SCLEROSIS
     Dosage: 250 OR 500 UG EVERY 2D OR 20MG DAILY, SUBCUTANEOUS
     Route: 058
     Dates: start: 20040715, end: 20050411

REACTIONS (3)
  - ASTHENIA [None]
  - PSYCHOTIC DISORDER [None]
  - PYREXIA [None]
